FAERS Safety Report 23482102 (Version 1)
Quarter: 2024Q1

REPORT INFORMATION
  Report Type: Spontaneous
  Country: US (occurrence: None)
  Receive Date: 20240203
  Receipt Date: 20240203
  Transmission Date: 20240410
  Serious: Yes (Other)
  Sender: FDA-Public Use
  Company Number: None

PATIENT
  Age: 69 Year
  Sex: Male
  Weight: 152.55 kg

DRUGS (3)
  1. TORSEMIDE [Suspect]
     Active Substance: TORSEMIDE
     Indication: Cardiac failure congestive
     Dates: start: 20240101, end: 20240125
  2. TORSEMIDE [Suspect]
     Active Substance: TORSEMIDE
     Indication: Back pain
  3. METHOCARBAMOL [Suspect]
     Active Substance: METHOCARBAMOL

REACTIONS (1)
  - Polyuria [None]

NARRATIVE: CASE EVENT DATE: 20240120
